FAERS Safety Report 7738260-1 (Version None)
Quarter: 2011Q3

REPORT INFORMATION
  Report Type: 
  Country: None (occurrence: None)
  Receive Date: 20110908
  Receipt Date: 20110830
  Transmission Date: 20111222
  Serious: Yes (Hospitalization)
  Sender: FDA-Public Use
  Company Number: JP-CEPHALON-2011003737

PATIENT
  Sex: Male
  Weight: 61 kg

DRUGS (4)
  1. RITUXIMAB [Suspect]
     Dates: start: 20110315, end: 20110621
  2. GRANISETRON HYDROCHLORIDE [Concomitant]
     Dates: start: 20110315, end: 20110621
  3. TREANDA [Suspect]
     Indication: B-CELL LYMPHOMA
     Route: 042
     Dates: start: 20110315, end: 20110316
  4. TREANDA [Suspect]
     Route: 042
     Dates: start: 20110621, end: 20110621

REACTIONS (3)
  - HERPES ZOSTER DISSEMINATED [None]
  - SUBILEUS [None]
  - PANCREATITIS ACUTE [None]
